FAERS Safety Report 9894217 (Version 2)
Quarter: 2014Q2

REPORT INFORMATION
  Report Type: Spontaneous
  Country: NO (occurrence: NO)
  Receive Date: 20140213
  Receipt Date: 20140428
  Transmission Date: 20141212
  Serious: Yes (Death)
  Sender: FDA-Public Use
  Company Number: NO-INCYTE CORPORATION-2014IN000338

PATIENT
  Sex: Male

DRUGS (1)
  1. JAKAVI [Suspect]
     Dosage: UNK UNK UNK

REACTIONS (1)
  - Myelofibrosis [Fatal]
